FAERS Safety Report 21274777 (Version 2)
Quarter: 2022Q3

REPORT INFORMATION
  Report Type: Spontaneous
  Country: FR (occurrence: FR)
  Receive Date: 20220831
  Receipt Date: 20220907
  Transmission Date: 20221027
  Serious: Yes (Other)
  Sender: FDA-Public Use
  Company Number: FR-009507513-2208FRA010900

PATIENT
  Sex: Male
  Weight: 79 kg

DRUGS (3)
  1. KEYTRUDA [Suspect]
     Active Substance: PEMBROLIZUMAB
     Indication: Oesophageal carcinoma
     Dosage: 200 MILLIGRAM
     Route: 042
     Dates: start: 20220530, end: 20220619
  2. CISPLATIN [Concomitant]
     Active Substance: CISPLATIN
     Dosage: 160 MILLIGRAM
     Route: 042
     Dates: start: 20220530, end: 20220619
  3. FLUOROURACIL [Concomitant]
     Active Substance: FLUOROURACIL
     Dosage: 8000 MILLIGRAM, DAY1-DAY 5

REACTIONS (2)
  - Renal failure [Unknown]
  - Tubulointerstitial nephritis [Unknown]

NARRATIVE: CASE EVENT DATE: 20220101
